FAERS Safety Report 9165529 (Version 1)
Quarter: 2013Q1

REPORT INFORMATION
  Report Type: Report from Study
  Country: US (occurrence: US)
  Receive Date: 20130315
  Receipt Date: 20130315
  Transmission Date: 20140127
  Serious: Yes (Hospitalization)
  Sender: FDA-Public Use
  Company Number: PHHY2013US024883

PATIENT
  Sex: Female
  Weight: 46.4 kg

DRUGS (1)
  1. LOPRESSOR [Suspect]
     Dosage: UNK
     Route: 048
     Dates: end: 20130218

REACTIONS (1)
  - Hypotension [Not Recovered/Not Resolved]
